FAERS Safety Report 19318952 (Version 1)
Quarter: 2021Q2

REPORT INFORMATION
  Report Type: Spontaneous
  Country: US (occurrence: US)
  Receive Date: 20210527
  Receipt Date: 20210527
  Transmission Date: 20210717
  Serious: Yes (Hospitalization, Other)
  Sender: FDA-Public Use
  Company Number: US-JNJFOC-20210543315

PATIENT
  Age: 42 Year
  Sex: Female

DRUGS (1)
  1. IMODIUM [Suspect]
     Active Substance: LOPERAMIDE HYDROCHLORIDE
     Indication: PRODUCT USED FOR UNKNOWN INDICATION
     Dosage: CHRONIC DAILY INGESTION OF 140 TABLETS OF LOPERAMIDE
     Route: 048

REACTIONS (4)
  - Torsade de pointes [Recovering/Resolving]
  - Drug abuse [Recovering/Resolving]
  - Overdose [Recovering/Resolving]
  - Cardiac arrest [Recovering/Resolving]
